FAERS Safety Report 6204038-3 (Version None)
Quarter: 2009Q2

REPORT INFORMATION
  Report Type: 
  Country: None (occurrence: None)
  Receive Date: 20090526
  Receipt Date: 20090526
  Transmission Date: 20091009
  Serious: No
  Sender: FDA-Public Use
  Company Number: None

PATIENT
  Age: 25 Year
  Sex: Male
  Weight: 74.8435 kg

DRUGS (1)
  1. CREST PRO-HEALTH COOL WINTERGREE CETYLPYRIDINIUM CHLORIDE 0.07% PROCTE [Suspect]
     Indication: DENTAL DISORDER PROPHYLAXIS
     Dates: start: 20080901, end: 20090521

REACTIONS (2)
  - EXPOSURE TO TOXIC AGENT [None]
  - TOOTH DISCOLOURATION [None]
